FAERS Safety Report 21608381 (Version 1)
Quarter: 2022Q4

REPORT INFORMATION
  Report Type: Spontaneous
  Country: US (occurrence: US)
  Receive Date: 20221117
  Receipt Date: 20221117
  Transmission Date: 20230113
  Serious: No
  Sender: FDA-Public Use
  Company Number: US-AMGEN-USASP2022194461

PATIENT
  Age: 74 Year
  Sex: Female

DRUGS (1)
  1. REPATHA [Suspect]
     Active Substance: EVOLOCUMAB
     Indication: Hypercholesterolaemia
     Dosage: 140 MILLIGRAM, Q2WK
     Route: 058

REACTIONS (6)
  - Bladder irritation [Unknown]
  - COVID-19 [Unknown]
  - Head discomfort [Unknown]
  - Nasopharyngitis [Recovered/Resolved]
  - Dyspnoea [Unknown]
  - Constipation [Unknown]

NARRATIVE: CASE EVENT DATE: 20220101
